FAERS Safety Report 5615308-1 (Version None)
Quarter: 2008Q1

REPORT INFORMATION
  Report Type: 
  Country: None (occurrence: None)
  Receive Date: 20080204
  Receipt Date: 20080204
  Transmission Date: 20080703
  Serious: Yes (Other)
  Sender: FDA-Public Use
  Company Number: None

PATIENT
  Age: 62 Year
  Sex: Male
  Weight: 81 kg

DRUGS (13)
  1. CCI-779(TEMSIROLIMUS) [Suspect]
     Indication: MULTIPLE MYELOMA
     Dosage: 15 MG/M2 WEEKLY
     Dates: start: 20071207, end: 20080124
  2. VELCADE [Suspect]
     Indication: MULTIPLE MYELOMA
     Dosage: 1.0 MG/M2 WEEKLY FOR 4
     Dates: start: 20071207, end: 20080124
  3. BACTRIM [Concomitant]
  4. LAMIVUDINE [Concomitant]
  5. FOLIC ACID [Concomitant]
  6. MULTI-VITAMIN [Concomitant]
  7. NEURONTIN [Concomitant]
  8. OXYCODONE HCL [Concomitant]
  9. PRILOSEC [Concomitant]
  10. VALTREX [Concomitant]
  11. VITAMIN B6 [Concomitant]
  12. BENADRYL [Concomitant]
  13. NEUPOGEN [Concomitant]

REACTIONS (1)
  - THROMBOCYTOPENIA [None]
